FAERS Safety Report 6170187-1 (Version None)
Quarter: 2009Q2

REPORT INFORMATION
  Report Type: 
  Country: None (occurrence: None)
  Receive Date: 20090427
  Receipt Date: 20090427
  Transmission Date: 20091009
  Serious: Yes (Death)
  Sender: FDA-Public Use
  Company Number: None

PATIENT
  Age: 35 Year
  Sex: Female
  Weight: 48 kg

DRUGS (6)
  1. LAMIVUDINE/STAVUDINE (COVIRO LS 30) [Suspect]
     Indication: HIV INFECTION
     Dosage: 100MG/60MG QD ORAL
     Route: 048
     Dates: start: 20080311, end: 20090323
  2. EFAVIRENZ [Suspect]
     Indication: HIV INFECTION
     Dosage: 600MG QD ORAL
     Route: 048
     Dates: start: 20080311, end: 20090323
  3. AKURIT-4 [Suspect]
     Indication: TUBERCULOSIS
     Dosage: 300/150/550/800 MG QD ORAL
     Route: 048
     Dates: start: 20080115, end: 20080422
  4. AKURIT [Suspect]
     Indication: TUBERCULOSIS
     Dosage: 375MG/187.5MG QD ORAL
     Route: 048
     Dates: start: 20080423, end: 20080715
  5. COTRIMOXAZOLE [Concomitant]
  6. FLUCONAZOLE [Concomitant]

REACTIONS (7)
  - ALANINE AMINOTRANSFERASE INCREASED [None]
  - ASPARTATE AMINOTRANSFERASE INCREASED [None]
  - ASTHENIA [None]
  - BLOOD LACTATE DEHYDROGENASE INCREASED [None]
  - DYSPNOEA [None]
  - HYPOAESTHESIA [None]
  - LACTIC ACIDOSIS [None]
